FAERS Safety Report 10337440 (Version 5)
Quarter: 2014Q4

REPORT INFORMATION
  Report Type: Spontaneous
  Country: US (occurrence: US)
  Receive Date: 20140724
  Receipt Date: 20141224
  Transmission Date: 20150528
  Serious: Yes (Hospitalization)
  Sender: FDA-Public Use
  Company Number: US-ACTELION-A-US2014-101624

PATIENT
  Age: 35 Year
  Sex: Female

DRUGS (3)
  1. VELETRI [Suspect]
     Active Substance: EPOPROSTENOL
     Dosage: 32 NG/KG, PER MIN
     Route: 042
  2. VELETRI [Suspect]
     Active Substance: EPOPROSTENOL
     Indication: PULMONARY ARTERIAL HYPERTENSION
     Dosage: 12 NG/KG, PER MIN
     Route: 042
     Dates: start: 20140520
  3. OXYGEN. [Concomitant]
     Active Substance: OXYGEN

REACTIONS (9)
  - Pruritus [Recovered/Resolved]
  - Catheter site rash [Unknown]
  - Catheter site inflammation [Unknown]
  - Dermatitis contact [Recovered/Resolved]
  - Catheter site cellulitis [Recovered/Resolved]
  - Skin reaction [Unknown]
  - Rash [Recovered/Resolved]
  - Blood culture negative [Recovered/Resolved]
  - Catheter site vesicles [Recovered/Resolved]
